FAERS Safety Report 10183207 (Version 1)
Quarter: 2014Q2

REPORT INFORMATION
  Report Type: Spontaneous
  Country: US (occurrence: US)
  Receive Date: 20140520
  Receipt Date: 20140520
  Transmission Date: 20141212
  Serious: No
  Sender: FDA-Public Use
  Company Number: US-009507513-1405USA008770

PATIENT
  Sex: Female

DRUGS (6)
  1. IMPLANON [Suspect]
     Indication: CONTRACEPTION
     Dosage: 1 ROD FOR 3 YEARS, SUBDERMALLY IN LEFT ARM
     Route: 059
     Dates: start: 20121213
  2. LAMOTRIGINE [Concomitant]
     Indication: TREMOR
  3. BUSPIRONE HYDROCHLORIDE [Concomitant]
     Indication: ANXIETY
  4. TERAZOSIN HYDROCHLORIDE [Concomitant]
     Indication: HYPERTENSION
  5. SLEEP AID (DOXYLAMINE SUCCINATE) [Concomitant]
  6. LORAZEPAM [Concomitant]
     Indication: ANXIETY

REACTIONS (12)
  - Nipple pain [Unknown]
  - Eye irritation [Unknown]
  - Irritability [Unknown]
  - Muscle spasms [Unknown]
  - Vision blurred [Unknown]
  - Acne [Unknown]
  - Menstruation irregular [Unknown]
  - Somnolence [Unknown]
  - Nervousness [Unknown]
  - Nausea [Unknown]
  - Headache [Unknown]
  - Abdominal distension [Unknown]
